FAERS Safety Report 8880111 (Version 2)
Quarter: 2012Q4

REPORT INFORMATION
  Report Type: 
  Country: JP (occurrence: JP)
  Receive Date: 20121031
  Receipt Date: 20121123
  Transmission Date: 20130627
  Serious: Yes (Other)
  Sender: FDA-Public Use
  Company Number: JP-ROCHE-1150596

PATIENT
  Age: 67 Year
  Sex: Male

DRUGS (7)
  1. MIRCERA [Suspect]
     Indication: NEPHROGENIC ANAEMIA
     Route: 065
     Dates: start: 20120824, end: 20120824
  2. AMIODARONE HYDROCHLORIDE [Suspect]
     Indication: PRODUCT USED FOR UNKNOWN INDICATION
     Dosage: Dosage is uncertain.
     Route: 048
  3. URSO [Suspect]
     Indication: PRODUCT USED FOR UNKNOWN INDICATION
     Dosage: Dosage is uncertain.
     Route: 048
  4. FLOPROPIONE [Suspect]
     Indication: PRODUCT USED FOR UNKNOWN INDICATION
     Dosage: Dosage is uncertain.
     Route: 048
  5. COVERSYL [Suspect]
     Indication: PRODUCT USED FOR UNKNOWN INDICATION
     Dosage: Dosage is uncertain.
     Route: 048
  6. FEBUXOSTAT [Suspect]
     Indication: PRODUCT USED FOR UNKNOWN INDICATION
     Dosage: Dosage is uncertain.
     Route: 048
  7. SAMSCA [Suspect]
     Indication: PRODUCT USED FOR UNKNOWN INDICATION
     Dosage: Dosage is uncertain.
     Route: 048

REACTIONS (2)
  - Drug eruption [Unknown]
  - Eosinophil count increased [Unknown]
